FAERS Safety Report 14137133 (Version 3)
Quarter: 2017Q4

REPORT INFORMATION
  Report Type: Spontaneous
  Country: JP (occurrence: JP)
  Receive Date: 20171027
  Receipt Date: 20171127
  Transmission Date: 20180321
  Serious: Yes (Death, Other)
  Sender: FDA-Public Use
  Company Number: JP-PFIZER INC-2017462583

PATIENT
  Age: 77 Year
  Sex: Female

DRUGS (4)
  1. ELPLAT [Suspect]
     Active Substance: OXALIPLATIN
     Indication: PANCREATIC CARCINOMA
     Dosage: 50 MG/M2, 1X/DAY
     Route: 041
     Dates: start: 201402, end: 201402
  2. 5-FU [Concomitant]
     Active Substance: FLUOROURACIL
     Indication: PANCREATIC CARCINOMA
     Dosage: UNK
     Route: 040
     Dates: start: 201402, end: 201402
  3. CAMPTO [Suspect]
     Active Substance: IRINOTECAN
     Indication: PANCREATIC CARCINOMA
     Dosage: 80 MG/M2, 1X/DAY
     Route: 041
     Dates: start: 201402, end: 201402
  4. LEVOFOLINATE YAKULT [Suspect]
     Active Substance: LEVOLEUCOVORIN CALCIUM
     Indication: PANCREATIC CARCINOMA
     Dosage: UNK UNK, 1X/DAY
     Route: 041
     Dates: start: 201402, end: 201402

REACTIONS (3)
  - Disseminated intravascular coagulation [Recovering/Resolving]
  - Vomiting [Recovering/Resolving]
  - Nausea [Recovering/Resolving]
